FAERS Safety Report 9303169 (Version 1)
Quarter: 2013Q1

REPORT INFORMATION
  Report Type: Spontaneous
  Country: FR (occurrence: None)
  Receive Date: 20130122
  Receipt Date: 20130122
  Transmission Date: 20140127
  Serious: Yes (Hospitalization)
  Sender: FDA-Public Use
  Company Number: MPS1-1000811

PATIENT
  Age: 3 Year
  Sex: Male
  Weight: 13.4 kg

DRUGS (2)
  1. ALDURAZYME [Suspect]
     Indication: MUCOPOLYSACCHARIDOSIS I
     Route: 042
     Dates: start: 201001
  2. OXYGEN (OXYGEN) [Concomitant]

REACTIONS (2)
  - General physical health deterioration [None]
  - Bronchopneumonia [None]
